FAERS Safety Report 16496098 (Version 1)
Quarter: 2019Q2

REPORT INFORMATION
  Report Type: Other
  Country: CN (occurrence: CN)
  Receive Date: 20190628
  Receipt Date: 20190628
  Transmission Date: 20190711
  Serious: Yes (Other)
  Sender: FDA-Public Use
  Company Number: CN-AGG-04-2019-1489

PATIENT
  Age: 66 Year
  Sex: Male

DRUGS (6)
  1. AGGRASTAT [Suspect]
     Active Substance: TIROFIBAN HYDROCHLORIDE
     Indication: OFF LABEL USE
     Dosage: LOADING DOSE 0.4 MG IV OVER 30 MINUTES
     Route: 041
     Dates: start: 20180430
  2. AGGRASTAT [Suspect]
     Active Substance: TIROFIBAN HYDROCHLORIDE
     Indication: ANTIPLATELET THERAPY
     Dosage: 0.1 MG/KG IV PER HOUR, SCHEDULED FOR 24 HOURS
     Route: 041
     Dates: start: 20180430
  3. DEXMEDETOMIDINE HCL [Concomitant]
     Dosage: SEDATED WITH DEXMEDETOMIDINE HCL (0.5 MCG/KG IV PER HOUR)
     Route: 041
     Dates: start: 20180430
  4. ASPIRIN. [Concomitant]
     Active Substance: ASPIRIN
     Dosage: DUAL ANTI-PLATELET THERAPY WITH CLOPIDOGREL FOR 3 MONTHS, ASPIRIN ONLY FROM THEN ONWARDS FOR LIFE
     Route: 048
  5. RTPA [Concomitant]
     Active Substance: ALTEPLASE
     Indication: THROMBOLYSIS
     Route: 040
  6. CLOPIDOGREL [Concomitant]
     Active Substance: CLOPIDOGREL BISULFATE
     Dosage: DUAL ANTI-PLATELET THERAPY FOR AT LEAST 3 MONTHS
     Route: 048

REACTIONS (2)
  - Haemorrhage intracranial [Recovered/Resolved with Sequelae]
  - Haemorrhagic transformation stroke [Recovered/Resolved with Sequelae]

NARRATIVE: CASE EVENT DATE: 20180430
